FAERS Safety Report 19823861 (Version 1)
Quarter: 2021Q3

REPORT INFORMATION
  Report Type: Spontaneous
  Country: JP (occurrence: JP)
  Receive Date: 20210914
  Receipt Date: 20210914
  Transmission Date: 20211014
  Serious: Yes (Other)
  Sender: FDA-Public Use
  Company Number: JP-AMGEN-JPNSP2021139667

PATIENT
  Age: 74 Year
  Sex: Male

DRUGS (2)
  1. ETRETINATE [Concomitant]
     Active Substance: ETRETINATE
  2. APREMILAST [Suspect]
     Active Substance: APREMILAST
     Indication: PSORIASIS
     Route: 065

REACTIONS (5)
  - Blood immunoglobulin E increased [Unknown]
  - Erythema [Unknown]
  - Cutaneous T-cell lymphoma [Unknown]
  - Pruritus [Unknown]
  - Therapeutic product effect incomplete [Unknown]
